FAERS Safety Report 23144903 (Version 1)
Quarter: 2023Q4

REPORT INFORMATION
  Report Type: Spontaneous
  Country: CA (occurrence: CA)
  Receive Date: 20231103
  Receipt Date: 20231103
  Transmission Date: 20240110
  Serious: Yes (Other)
  Sender: FDA-Public Use
  Company Number: CA-009507513-2311CAN000265

PATIENT
  Age: 76 Year
  Sex: Male

DRUGS (5)
  1. KEYTRUDA [Suspect]
     Active Substance: PEMBROLIZUMAB
     Indication: Non-small cell lung cancer
     Dosage: UNK, CYCLICAL
  2. CARBOPLATIN [Suspect]
     Active Substance: CARBOPLATIN
     Indication: Non-small cell lung cancer
     Dosage: UNK, CYCLICAL
  3. PEMETREXED [Suspect]
     Active Substance: PEMETREXED
     Indication: Non-small cell lung cancer
     Dosage: UNK, CYCLICAL
  4. PEGFILGRASTIM [Concomitant]
     Active Substance: PEGFILGRASTIM
     Indication: Prophylaxis
  5. PREDNISONE [Concomitant]
     Active Substance: PREDNISONE
     Dosage: 1.0 MILLIGRAM/KILOGRAM

REACTIONS (5)
  - Back pain [Recovered/Resolved]
  - Blood creatinine increased [Recovered/Resolved]
  - Cytopenia [Recovered/Resolved]
  - Neoplasm progression [Recovered/Resolved]
  - Off label use [Recovered/Resolved]
